FAERS Safety Report 6533685-4 (Version None)
Quarter: 2010Q1

REPORT INFORMATION
  Report Type: 
  Country: None (occurrence: None)
  Receive Date: 20100108
  Receipt Date: 20100108
  Transmission Date: 20100710
  Serious: Yes (Life-Threatening)
  Sender: FDA-Public Use
  Company Number: None

PATIENT
  Age: 53 Year
  Sex: Female
  Weight: 61.6892 kg

DRUGS (1)
  1. ACTONEL [Suspect]
     Indication: BONE DISORDER
     Dosage: 1 PILL PO
     Route: 048
     Dates: start: 20091106, end: 20091206

REACTIONS (5)
  - ARRHYTHMIA [None]
  - BONE PAIN [None]
  - HYPERTENSION [None]
  - PYREXIA [None]
  - SYNCOPE [None]
